FAERS Safety Report 7321620-0 (Version None)
Quarter: 2011Q1

REPORT INFORMATION
  Report Type: 
  Country: None (occurrence: None)
  Receive Date: 20110228
  Receipt Date: 20100901
  Transmission Date: 20110831
  Serious: No
  Sender: FDA-Public Use
  Company Number: A0878950A

PATIENT
  Age: 80 Year
  Sex: Female

DRUGS (4)
  1. CORTISONE EYE DROPS [Suspect]
     Indication: EYE INFECTION
     Dates: start: 20090101
  2. CORTISONE ACETATE INJ [Suspect]
  3. VALTREX [Suspect]
     Dosage: 1G THREE TIMES PER DAY
     Route: 048
     Dates: start: 20080401, end: 20080101
  4. TYLENOL W/ CODEINE [Concomitant]

REACTIONS (4)
  - DRUG INEFFECTIVE [None]
  - PAIN [None]
  - PRURITUS [None]
  - HERPES VIRUS INFECTION [None]
